FAERS Safety Report 16544856 (Version 1)
Quarter: 2019Q3

REPORT INFORMATION
  Report Type: Spontaneous
  Country: DE (occurrence: DE)
  Receive Date: 20190709
  Receipt Date: 20190709
  Transmission Date: 20191004
  Serious: Yes (Life-Threatening, Other)
  Sender: FDA-Public Use
  Company Number: DE-SA-2019SA156101

PATIENT
  Age: 36 Year
  Sex: Female
  Weight: 66 kg

DRUGS (6)
  1. LEMTRADA [Suspect]
     Active Substance: ALEMTUZUMAB
     Dosage: UNK
     Route: 041
     Dates: start: 201611
  2. LEMTRADA [Suspect]
     Active Substance: ALEMTUZUMAB
     Indication: MULTIPLE SCLEROSIS
     Dosage: 12 MG, QD
     Route: 041
     Dates: start: 20151102, end: 20151106
  3. NOVALGIN (METAMIZOLE SODIUM) [Concomitant]
     Active Substance: METAMIZOLE SODIUM
     Dosage: 1 G, PRN, MAX 4 X DAILY
     Route: 065
  4. CERTOPARIN SODIUM [Concomitant]
     Active Substance: CERTOPARIN SODIUM
     Indication: THROMBOSIS PROPHYLAXIS
     Dosage: 3000 IU UNK
     Route: 058
  5. LEMTRADA [Suspect]
     Active Substance: ALEMTUZUMAB
     Dosage: UNK
     Route: 041
     Dates: start: 201712
  6. L-THYROXINE [LEVOTHYROXINE] [Concomitant]
     Active Substance: LEVOTHYROXINE
     Indication: THYROIDECTOMY
     Dosage: 100 UG, QD
     Route: 048
     Dates: start: 20190521

REACTIONS (11)
  - Basedow^s disease [Unknown]
  - Dysphonia [Unknown]
  - Multiple sclerosis relapse [Unknown]
  - Thyroid cancer [Recovered/Resolved with Sequelae]
  - Tachycardia [Unknown]
  - Restlessness [Unknown]
  - Heart rate irregular [Unknown]
  - Gait disturbance [Unknown]
  - Limb discomfort [Unknown]
  - Hyperthyroidism [Unknown]
  - Palpitations [Unknown]

NARRATIVE: CASE EVENT DATE: 201710
